FAERS Safety Report 17284051 (Version 1)
Quarter: 2020Q1

REPORT INFORMATION
  Report Type: Spontaneous
  Country: IE (occurrence: IE)
  Receive Date: 20200117
  Receipt Date: 20200117
  Transmission Date: 20200409
  Serious: Yes (Disabling)
  Sender: FDA-Public Use
  Company Number: IE-PFIZER INC-2020017952

PATIENT
  Age: 66 Year
  Sex: Female

DRUGS (4)
  1. ATORVASTATIN [Concomitant]
     Active Substance: ATORVASTATIN
     Indication: LIPIDS INCREASED
     Dosage: 20 MG, UNK,  PO NOCTE
     Route: 048
     Dates: start: 201210
  2. AMLODIPINE [Concomitant]
     Active Substance: AMLODIPINE BESYLATE
     Indication: HYPERTENSION
     Dosage: 5 MG, UNK
     Route: 048
     Dates: start: 201907
  3. PREGABALIN. [Suspect]
     Active Substance: PREGABALIN
     Indication: PAIN IN EXTREMITY
     Dosage: 25 MG, UNK (PO NOCTE)
     Route: 048
     Dates: start: 20190611
  4. LEVOTHYROXINE SODIUM. [Concomitant]
     Active Substance: LEVOTHYROXINE SODIUM
     Indication: HYPOTHYROIDISM
     Dosage: 50 MG, UNK, 50 MCG 3/7, 100 MCG 4/7
     Route: 048
     Dates: start: 200002

REACTIONS (4)
  - Self-injurious ideation [Recovered/Resolved]
  - Depressed mood [Recovered/Resolved]
  - Nightmare [Recovered/Resolved]
  - Mood altered [Recovered/Resolved]
